FAERS Safety Report 5638947-0 (Version None)
Quarter: 2008Q1

REPORT INFORMATION
  Report Type: 
  Country: None (occurrence: None)
  Receive Date: 20080225
  Receipt Date: 20080225
  Transmission Date: 20080703
  Serious: Yes (Other)
  Sender: FDA-Public Use
  Company Number: None

PATIENT
  Sex: Male
  Weight: 74.8435 kg

DRUGS (7)
  1. AVELOX [Suspect]
     Indication: SINUSITIS
     Dates: start: 20080218, end: 20080220
  2. BROMFENEX PD [Suspect]
  3. TRICOR [Concomitant]
  4. PLAVIX [Concomitant]
  5. OMEPRAZOLE [Concomitant]
  6. METOPROLOL TARTRATE [Concomitant]
  7. ZOCOR [Concomitant]

REACTIONS (4)
  - ABNORMAL BEHAVIOUR [None]
  - AGGRESSION [None]
  - DELUSION [None]
  - HALLUCINATION [None]
